FAERS Safety Report 5529901-8 (Version None)
Quarter: 2007Q4

REPORT INFORMATION
  Report Type: 
  Country: None (occurrence: None)
  Receive Date: 20071129
  Receipt Date: 20071115
  Transmission Date: 20080405
  Serious: No
  Sender: FDA-Public Use
  Company Number: US-BOEHRINGER INGELHEIM PHARMACEUTICALS, INC.-2007-BP-24657BP

PATIENT
  Sex: Female

DRUGS (4)
  1. SPIRIVA [Suspect]
     Indication: SARCOIDOSIS
     Route: 055
     Dates: start: 20070401, end: 20071001
  2. COMBIVENT [Suspect]
     Indication: SARCOIDOSIS
  3. PREDNISONE TAB [Concomitant]
  4. AMARYL [Concomitant]
     Indication: DIABETES MELLITUS

REACTIONS (8)
  - CONFUSIONAL STATE [None]
  - CONSTIPATION [None]
  - DRY MOUTH [None]
  - DYSPEPSIA [None]
  - DYSPNOEA [None]
  - HEADACHE [None]
  - THIRST [None]
  - VAGINAL HAEMORRHAGE [None]
